FAERS Safety Report 8002097-9 (Version None)
Quarter: 2011Q4

REPORT INFORMATION
  Report Type: 
  Country: None (occurrence: None)
  Receive Date: 20111222
  Receipt Date: 20111216
  Transmission Date: 20120403
  Serious: Yes (Hospitalization)
  Sender: FDA-Public Use
  Company Number: FR-PFIZER INC-2011306052

PATIENT
  Age: 64 Year
  Sex: Female
  Weight: 59 kg

DRUGS (9)
  1. ATORVASTATIN CALCIUM [Suspect]
     Indication: DYSLIPIDAEMIA
     Dosage: 40 MG, 1X/DAY
     Route: 048
     Dates: start: 20000101
  2. RAPAMUNE [Suspect]
     Indication: PROPHYLAXIS AGAINST TRANSPLANT REJECTION
     Dosage: 1 MG, 1X/DAY
     Route: 048
     Dates: start: 20000101
  3. AMLODIPINE [Suspect]
     Indication: HYPERTENSION
     Dosage: 5 MG, 2X/DAY
     Route: 048
  4. CALCIUM ^SANDOZ^ [Concomitant]
     Dosage: 500 MG, 2X/DAY
     Route: 048
  5. EZETIMIBE [Suspect]
     Indication: DYSLIPIDAEMIA
     Dosage: 10 MG, 1X/DAY
     Route: 048
  6. ACTONEL [Suspect]
     Dosage: 0.143 MG, 1X/DAY
     Route: 048
  7. PERINDOPRIL [Concomitant]
     Indication: HYPERTENSION
     Dosage: 4 MG, 1X/DAY
     Route: 048
     Dates: start: 20020101
  8. PREDNISONE TAB [Suspect]
     Indication: PROPHYLAXIS AGAINST TRANSPLANT REJECTION
     Dosage: 5 MG, 1X/DAY
     Dates: start: 20000101
  9. TENORMIN [Concomitant]
     Indication: HYPERTENSION
     Dosage: 50 MG, 1X/DAY
     Route: 048
     Dates: start: 20000101

REACTIONS (2)
  - LYMPHOEDEMA [None]
  - OEDEMA PERIPHERAL [None]
